FAERS Safety Report 5302236-4 (Version None)
Quarter: 2007Q2

REPORT INFORMATION
  Report Type: 
  Country: None (occurrence: None)
  Receive Date: 20070419
  Receipt Date: 20060505
  Transmission Date: 20071010
  Serious: No
  Sender: FDA-Public Use
  Company Number: US-GLAXOSMITHKLINE-A0604912A

PATIENT
  Age: 37 Year
  Sex: Male

DRUGS (1)
  1. ESKALITH [Suspect]
     Indication: BIPOLAR DISORDER

REACTIONS (3)
  - AGITATION [None]
  - CONFUSIONAL STATE [None]
  - DISTURBANCE IN ATTENTION [None]
